FAERS Safety Report 8183687-X (Version None)
Quarter: 2012Q1

REPORT INFORMATION
  Report Type: 
  Country: None (occurrence: None)
  Receive Date: 20120305
  Receipt Date: 20120228
  Transmission Date: 20120608
  Serious: Yes (Death)
  Sender: FDA-Public Use
  Company Number: PHEH2012US004831

PATIENT
  Sex: Male

DRUGS (5)
  1. VELCADE [Concomitant]
  2. ALOXI [Concomitant]
  3. ZOMETA [Suspect]
     Indication: MULTIPLE MYELOMA
     Dosage: 4 MG, EVERY 4 WEEKS
     Route: 042
     Dates: start: 20091008
  4. NEULASTA [Concomitant]
  5. GAMUNEX [Concomitant]

REACTIONS (1)
  - DEATH [None]
